FAERS Safety Report 20045397 (Version 1)
Quarter: 2021Q4

REPORT INFORMATION
  Report Type: Spontaneous
  Country: IN (occurrence: IN)
  Receive Date: 20211108
  Receipt Date: 20211108
  Transmission Date: 20220303
  Serious: Yes (Other)
  Sender: FDA-Public Use
  Company Number: IN-ABBVIE-21K-078-4146077-00

PATIENT
  Age: 14 Year
  Sex: Female

DRUGS (5)
  1. VALPROATE SODIUM [Interacting]
     Active Substance: VALPROATE SODIUM
     Indication: Epilepsy
     Dosage: GRADUALLY UP-TITRATED TO 2 GM
     Route: 065
  2. VALPROATE SODIUM [Interacting]
     Active Substance: VALPROATE SODIUM
     Route: 065
  3. CARBAMAZEPINE [Interacting]
     Active Substance: CARBAMAZEPINE
     Indication: Epilepsy
     Route: 065
  4. QUETIAPINE [Concomitant]
     Active Substance: QUETIAPINE
     Indication: Product used for unknown indication
  5. ARIPIPRAZOLE [Concomitant]
     Active Substance: ARIPIPRAZOLE
     Indication: Product used for unknown indication

REACTIONS (6)
  - Drug level decreased [Unknown]
  - Toxicity to various agents [Unknown]
  - Hyperammonaemia [Recovered/Resolved]
  - Drug interaction [Unknown]
  - Hepatic enzyme increased [Recovered/Resolved]
  - Drug ineffective [Unknown]
